FAERS Safety Report 18640010 (Version 1)
Quarter: 2020Q4

REPORT INFORMATION
  Report Type: Spontaneous
  Country: US (occurrence: US)
  Receive Date: 20201220
  Receipt Date: 20201220
  Transmission Date: 20210114
  Serious: No
  Sender: FDA-Public Use
  Company Number: US-PACIRA-202000340

PATIENT
  Sex: Male

DRUGS (1)
  1. EXPAREL [Suspect]
     Active Substance: BUPIVACAINE
     Indication: GASTRECTOMY
     Dosage: NOT PROVIDED
     Route: 065
     Dates: start: 20200827, end: 20200827

REACTIONS (2)
  - Injection site urticaria [Not Recovered/Not Resolved]
  - Incision site dermatitis [Not Recovered/Not Resolved]
